FAERS Safety Report 23949511 (Version 2)
Quarter: 2024Q2

REPORT INFORMATION
  Report Type: Spontaneous
  Country: US (occurrence: None)
  Receive Date: 20240607
  Receipt Date: 20240624
  Transmission Date: 20240716
  Serious: No
  Sender: FDA-Public Use
  Company Number: 2024A111161

PATIENT
  Sex: Female

DRUGS (2)
  1. FASENRA [Suspect]
     Active Substance: BENRALIZUMAB
     Route: 058
  2. DUPIXENT [Suspect]
     Active Substance: DUPILUMAB

REACTIONS (11)
  - Gastrointestinal disorder [Unknown]
  - Coeliac disease [Unknown]
  - Gastrooesophageal reflux disease [Unknown]
  - Malaise [Unknown]
  - Abdominal pain [Unknown]
  - Visual impairment [Unknown]
  - Abdominal discomfort [Unknown]
  - Flatulence [Unknown]
  - Pain [Unknown]
  - Eructation [Unknown]
  - Nausea [Unknown]
